FAERS Safety Report 7679546-9 (Version None)
Quarter: 2011Q3

REPORT INFORMATION
  Report Type: 
  Country: None (occurrence: None)
  Receive Date: 20110812
  Receipt Date: 20110808
  Transmission Date: 20111222
  Serious: Yes (Other)
  Sender: FDA-Public Use
  Company Number: US-BRISTOL-MYERS SQUIBB COMPANY-15957822

PATIENT
  Sex: Female

DRUGS (1)
  1. KENALOG-10 [Suspect]

REACTIONS (3)
  - PAIN [None]
  - DYSPNOEA [None]
  - INJECTION SITE ATROPHY [None]
